APPROVED DRUG PRODUCT: ONIVYDE
Active Ingredient: IRINOTECAN HYDROCHLORIDE
Strength: EQ 43MG BASE/10ML (EQ 4.3MG BASE/ML)
Dosage Form/Route: INJECTABLE, LIPOSOMAL;INTRAVENOUS
Application: N207793 | Product #001
Applicant: IPSEN BIOPHARMACEUTICALS INC
Approved: Oct 22, 2015 | RLD: Yes | RS: Yes | Type: RX

PATENTS:
Patent 9717724 | Expires: Jun 12, 2033
Patent 9492442 | Expires: Jun 12, 2033
Patent 9364473 | Expires: Jun 12, 2033
Patent 12364691 | Expires: Jun 12, 2033
Patent 11369597 | Expires: Jun 12, 2033
Patent 9339497 | Expires: Jun 12, 2033
Patent 9452162 | Expires: Jun 12, 2033
Patent 9492442 | Expires: Jun 12, 2033
Patent 9717724 | Expires: Jun 12, 2033
Patent 9492442 | Expires: Jun 12, 2033
Patent 11344552 | Expires: Aug 19, 2036
Patent 10980795 | Expires: Jun 12, 2033
Patent 8147867 | Expires: Aug 29, 2028
Patent 12059497 | Expires: Oct 15, 2036
Patent 10456360 | Expires: Oct 15, 2036
Patent 10993914 | Expires: Oct 15, 2036
Patent 8329213 | Expires: Jan 6, 2027

EXCLUSIVITY:
Code: I-932 | Date: Feb 13, 2027
Code: ODE-463 | Date: Feb 13, 2031